FAERS Safety Report 20361050 (Version 4)
Quarter: 2022Q1

REPORT INFORMATION
  Report Type: Spontaneous
  Country: US (occurrence: US)
  Receive Date: 20220121
  Receipt Date: 20220202
  Transmission Date: 20220423
  Serious: No
  Sender: FDA-Public Use
  Company Number: US-SA-SAC20211227001119

PATIENT
  Age: 73 Year
  Sex: Male

DRUGS (3)
  1. DUPIXENT [Suspect]
     Active Substance: DUPILUMAB
     Indication: Dermatitis atopic
     Dosage: UNK, 1X
     Route: 058
     Dates: start: 20211125, end: 20211125
  2. DUPIXENT [Suspect]
     Active Substance: DUPILUMAB
     Dosage: 300 MG, QOW
     Route: 058
     Dates: start: 20211129
  3. IRON [Concomitant]
     Active Substance: IRON
     Indication: Haemoglobin decreased

REACTIONS (4)
  - Injection site pain [Recovering/Resolving]
  - Rash macular [Recovering/Resolving]
  - Pruritus [Unknown]
  - Product use issue [Unknown]
